FAERS Safety Report 4431472-4 (Version None)
Quarter: 2004Q3

REPORT INFORMATION
  Report Type: 
  Country: None (occurrence: None)
  Receive Date: 20040818
  Receipt Date: 20040729
  Transmission Date: 20050211
  Serious: Yes (Hospitalization, Other)
  Sender: FDA-Public Use
  Company Number: USA040774132

PATIENT
  Age: 65 Year
  Sex: Female

DRUGS (4)
  1. FORTEO [Suspect]
     Indication: OSTEOPOROSIS
     Dosage: 20 UG DAY
     Dates: start: 20030701
  2. IBUPROFEN [Concomitant]
  3. IRON [Concomitant]
  4. EFFEXOR [Concomitant]

REACTIONS (7)
  - FOOT FRACTURE [None]
  - IMPAIRED HEALING [None]
  - INCISION SITE COMPLICATION [None]
  - PHARMACEUTICAL PRODUCT COMPLAINT [None]
  - ROAD TRAFFIC ACCIDENT [None]
  - WOUND DEHISCENCE [None]
  - WOUND SECRETION [None]
